FAERS Safety Report 24698450 (Version 5)
Quarter: 2025Q1

REPORT INFORMATION
  Report Type: Spontaneous
  Country: US (occurrence: US)
  Receive Date: 20241204
  Receipt Date: 20250301
  Transmission Date: 20250409
  Serious: No
  Sender: SANOFI AVENTIS
  Company Number: US-SA-2024SA354102

PATIENT
  Age: 20 Year
  Sex: Female

DRUGS (4)
  1. DUPIXENT [Suspect]
     Active Substance: DUPILUMAB
     Indication: Dermatitis atopic
     Route: 058
     Dates: start: 202410, end: 202410
  2. DUPIXENT [Suspect]
     Active Substance: DUPILUMAB
     Indication: Eczema
     Dosage: 300 MG, QOW
     Route: 058
     Dates: start: 2024, end: 2024
  3. DUPIXENT [Suspect]
     Active Substance: DUPILUMAB
     Dosage: 300 MG, QOW
     Route: 058
     Dates: start: 2024, end: 202412
  4. DUPIXENT [Suspect]
     Active Substance: DUPILUMAB
     Dosage: 300 MG, QOW
     Route: 058
     Dates: start: 202501

REACTIONS (5)
  - Ocular hyperaemia [Unknown]
  - Vision blurred [Unknown]
  - Dermatitis atopic [Unknown]
  - Product dose omission issue [Unknown]
  - Inappropriate schedule of product administration [Unknown]

NARRATIVE: CASE EVENT DATE: 20240101
